FAERS Safety Report 7852117-7 (Version None)
Quarter: 2011Q4

REPORT INFORMATION
  Report Type: 
  Country: None (occurrence: None)
  Receive Date: 20111026
  Receipt Date: 20111021
  Transmission Date: 20120403
  Serious: Yes (Other)
  Sender: FDA-Public Use
  Company Number: FR-PFIZER INC-2011254641

PATIENT
  Age: 67 Year
  Sex: Female

DRUGS (3)
  1. PAROXETINE HCL [Suspect]
     Dosage: 10 MG, 1X/DAY
     Route: 048
  2. CALCIUM CARBONATE AND CALCIUM CITRATE AND CALCIUM PHOSPHATE AND CHOLEC [Suspect]
     Dosage: 1 DF, 1X/DAY
     Route: 048
  3. ALDACTONE [Suspect]
     Dosage: 50 MG, 1X/DAY
     Route: 048
     Dates: start: 20090101, end: 20110927

REACTIONS (1)
  - LICHEN PLANUS [None]
